FAERS Safety Report 9765131 (Version 6)
Quarter: 2014Q2

REPORT INFORMATION
  Report Type: Report from Study
  Country: HU (occurrence: HU)
  Receive Date: 20131217
  Receipt Date: 20140408
  Transmission Date: 20141212
  Serious: Yes (Hospitalization)
  Sender: FDA-Public Use
  Company Number: HU-AMGEN-HUNCT2013032747

PATIENT
  Age: 64 Year
  Sex: Male
  Weight: 74.2 kg

DRUGS (11)
  1. DENOSUMAB [Suspect]
     Indication: OSTEOPOROSIS
     Dosage: 60 MG, UNK
     Route: 065
     Dates: start: 20120927, end: 20130327
  2. MEDROL [Concomitant]
     Dosage: 8 MG, UNK
     Route: 048
     Dates: start: 20120719
  3. OMNIC TOCAS [Concomitant]
     Dosage: 1 UNK, UNK
     Route: 048
     Dates: start: 2006
  4. FOLIC ACID [Concomitant]
     Dosage: 1 UNK, UNK
     Route: 048
     Dates: start: 201111
  5. CALCIVID [Concomitant]
     Dosage: 1 UNK, UNK
     Route: 048
     Dates: start: 20120927
  6. CONCOR [Concomitant]
     Dosage: 2.5 MG, UNK
     Route: 048
     Dates: start: 2008
  7. FURON                              /00032601/ [Concomitant]
     Dosage: 1 UNK, UNK
     Route: 048
     Dates: start: 2008
  8. LEFLUNOMID SANDOZ [Concomitant]
     Dosage: 20 MG, UNK
     Route: 048
     Dates: start: 201207
  9. METHOTREXATE [Concomitant]
     Dosage: 17.5 MG, UNK
     Route: 048
     Dates: start: 201111
  10. NOACID                             /00057401/ [Concomitant]
     Dosage: 40 MG, UNK
     Route: 048
     Dates: start: 201111
  11. KALDYUM [Concomitant]
     Dosage: 1 UNK, UNK
     Route: 048
     Dates: start: 201111

REACTIONS (1)
  - Diverticulum intestinal [Recovered/Resolved]
